FAERS Safety Report 24186893 (Version 2)
Quarter: 2024Q4

REPORT INFORMATION
  Report Type: Report from Study
  Country: CA (occurrence: CA)
  Receive Date: 20240808
  Receipt Date: 20241204
  Transmission Date: 20250114
  Serious: Yes (Other)
  Sender: ALEXION PHARMACEUTICALS
  Company Number: 2022A019567

PATIENT

DRUGS (4)
  1. IMFINZI [Suspect]
     Active Substance: DURVALUMAB
     Dosage: 1500 MILLIGRAM, Q3W
  2. IMFINZI [Suspect]
     Active Substance: DURVALUMAB
     Dosage: 1500 MILLIGRAM, Q3W
  3. IMFINZI [Suspect]
     Active Substance: DURVALUMAB
     Dosage: 1500 MILLIGRAM, Q3W
  4. IMFINZI [Suspect]
     Active Substance: DURVALUMAB
     Dosage: 1500 MILLIGRAM, Q3W

REACTIONS (24)
  - Anaphylactic reaction [Unknown]
  - Hypersensitivity [Unknown]
  - Cytokine release syndrome [Unknown]
  - Thrombocytopenia [Unknown]
  - Anaemia [Unknown]
  - Pain [Unknown]
  - Nausea [Unknown]
  - Depression [Unknown]
  - Anxiety [Unknown]
  - Somnolence [Unknown]
  - Appetite disorder [Unknown]
  - General physical health deterioration [Unknown]
  - Dyspnoea [Unknown]
  - Disturbance in attention [Unknown]
  - Sleep disorder [Unknown]
  - Depressed mood [Unknown]
  - Rash pruritic [Unknown]
  - Affective disorder [Unknown]
  - Fatigue [Unknown]
  - Memory impairment [Unknown]
  - Frustration tolerance decreased [Unknown]
  - Anger [Unknown]
  - Neutropenia [Unknown]
  - Product physical issue [Unknown]
